FAERS Safety Report 16096799 (Version 1)
Quarter: 2019Q1

REPORT INFORMATION
  Report Type: Spontaneous
  Country: GB (occurrence: GB)
  Receive Date: 20190320
  Receipt Date: 20190320
  Transmission Date: 20190418
  Serious: Yes (Hospitalization, Other)
  Sender: FDA-Public Use
  Company Number: GB-MYLANLABS-2019M1024882

PATIENT
  Age: 79 Year
  Sex: Male

DRUGS (10)
  1. LANSOPRAZOLE. [Suspect]
     Active Substance: LANSOPRAZOLE
     Indication: PRODUCT USED FOR UNKNOWN INDICATION
     Dosage: 30 MILLIGRAM, QD(IN THE MORNING)
     Route: 048
  2. TAMSULOSIN [Concomitant]
     Active Substance: TAMSULOSIN
     Dosage: 400 MICROGRAM
     Route: 065
  3. FOLIC ACID. [Concomitant]
     Active Substance: FOLIC ACID
     Dosage: 5 MILLIGRAM
  4. ADCAL D3 [Concomitant]
     Active Substance: CALCIUM CARBONATE\CHOLECALCIFEROL
     Dosage: UNK (TUTTI FRUTTI)
  5. IBUPROFEN. [Concomitant]
     Active Substance: IBUPROFEN
     Dosage: UNK
  6. TRAMADOL. [Concomitant]
     Active Substance: TRAMADOL
     Dosage: 50 MILLIGRAM
  7. ALENDRONIC ACID [Concomitant]
     Active Substance: ALENDRONIC ACID
     Dosage: 70 MILLIGRAM
  8. CLOPIDOGREL [Concomitant]
     Active Substance: CLOPIDOGREL BISULFATE
     Dosage: 75 MILLIGRAM
  9. PARACETAMOL [Concomitant]
     Active Substance: ACETAMINOPHEN
     Dosage: 500 MILLIGRAM
  10. COSMOCOL [Concomitant]
     Dosage: UNK SACHETS
     Route: 048

REACTIONS (2)
  - Hyponatraemia [Recovering/Resolving]
  - Pain [Unknown]

NARRATIVE: CASE EVENT DATE: 20180825
